FAERS Safety Report 22650407 (Version 1)
Quarter: 2023Q2

REPORT INFORMATION
  Report Type: Other
  Country: None (occurrence: US)
  Receive Date: 20230628
  Receipt Date: 20230628
  Transmission Date: 20230722
  Serious: Yes (Hospitalization)
  Sender: FDA-Public Use
  Company Number: US-B.Braun Medical Inc.-2143198

PATIENT
  Age: 17 Year
  Sex: Male

DRUGS (5)
  1. HEPARIN SODIUM IN DEXTROSE [Suspect]
     Active Substance: HEPARIN SODIUM
     Indication: Anticoagulant therapy
  2. METRONIDAZOLE [Concomitant]
     Active Substance: METRONIDAZOLE
  3. VANCOMYCIN [Concomitant]
     Active Substance: VANCOMYCIN
  4. AMPICILLIN SODIUM\SULBACTAM SODIUM [Concomitant]
     Active Substance: AMPICILLIN SODIUM\SULBACTAM SODIUM
  5. MEROPENEM [Concomitant]
     Active Substance: MEROPENEM

REACTIONS (3)
  - Protein C decreased [Unknown]
  - Protein S decreased [Unknown]
  - Coagulation factor VIII level increased [Unknown]
